FAERS Safety Report 21052059 (Version 2)
Quarter: 2022Q3

REPORT INFORMATION
  Report Type: Spontaneous
  Country: ES (occurrence: ES)
  Receive Date: 20220707
  Receipt Date: 20220915
  Transmission Date: 20221026
  Serious: Yes (Hospitalization, Other)
  Sender: FDA-Public Use
  Company Number: ES-EMA-DD-20220627-7182781-082458

PATIENT
  Age: 75 Year
  Sex: Male

DRUGS (15)
  1. CLOPIDOGREL BISULFATE [Interacting]
     Active Substance: CLOPIDOGREL BISULFATE
     Indication: Cerebrovascular accident
     Dosage: FREQUENCY OF ADMINISTRATION 0/1/0, FOR 2 YEARS
  2. CLOPIDOGREL BISULFATE [Interacting]
     Active Substance: CLOPIDOGREL BISULFATE
     Indication: Cardiovascular disorder
     Dosage: 0/1/0, 2 YEARS AGO
     Route: 048
  3. METFORMIN HYDROCHLORIDE [Interacting]
     Active Substance: METFORMIN HYDROCHLORIDE
     Indication: Diabetes mellitus
     Dosage: 1/0/1
     Route: 048
  4. METFORMIN HYDROCHLORIDE [Interacting]
     Active Substance: METFORMIN HYDROCHLORIDE
     Dosage: 850 MG
  5. REPAGLINIDE [Interacting]
     Active Substance: REPAGLINIDE
     Indication: Diabetes mellitus
     Dosage: 1/0/1; FREQUENCY OF ADMINISTRATION 2/2/1
     Route: 048
  6. PREDNISONE [Interacting]
     Active Substance: PREDNISONE
     Indication: Gastrointestinal inflammation
     Dosage: FREQUENCY OF ADMINISTRATION 0.5/0.5, FOR 3 MONTHS
  7. PREDNISONE [Interacting]
     Active Substance: PREDNISONE
     Indication: Inflammatory bowel disease
     Dosage: FREQUENCY OF ADMINISTRATION 0.5/0.5, FOR 3 MONTHS
     Route: 048
  8. ACETAMINOPHEN [Concomitant]
     Active Substance: ACETAMINOPHEN
     Indication: Pain
     Dosage: ON DEMAND
     Route: 048
  9. DONEPEZIL [Concomitant]
     Active Substance: DONEPEZIL
     Indication: Dementia
     Dosage: 10 MG QD, 1/0/0, ONE YEAR AGO
     Route: 048
  10. FOLIC ACID [Concomitant]
     Active Substance: FOLIC ACID
     Indication: Vitamin B complex deficiency
     Dosage: 5 MG QD, FREQUENCY OF ADMINISTRATION: 0/1/0
  11. FOLIC ACID [Concomitant]
     Active Substance: FOLIC ACID
     Indication: Folate deficiency
     Dosage: 0/1/0
     Route: 048
  12. VILDAGLIPTIN [Concomitant]
     Active Substance: VILDAGLIPTIN
     Indication: Diabetes mellitus
     Dosage: 0/1/1
     Route: 048
  13. VIDARABINE [Concomitant]
     Active Substance: VIDARABINE
     Indication: Diabetes mellitus
     Dosage: 50 MILLIGRAM, BID (0/1/1)
  14. VITAMIN D NOS [Concomitant]
     Active Substance: VITAMIN D NOS
     Indication: Osteoporosis prophylaxis
     Dosage: 1000 MG/800 UI, FREQUENCY OF ADMINISTRATION 1/0/0, FOR 3 MONTHS
  15. CALCIO + VITAMINA D3 [Concomitant]
     Indication: Steroid therapy
     Dosage: 1/0/0, THREE MONTHS AGO
     Route: 048

REACTIONS (9)
  - Gastrointestinal disorder [Recovering/Resolving]
  - Anal incontinence [Recovering/Resolving]
  - Diarrhoea [Recovering/Resolving]
  - Abdominal pain [Recovering/Resolving]
  - Drug interaction [Recovering/Resolving]
  - Flatulence [Recovering/Resolving]
  - Contraindication to medical treatment [Recovering/Resolving]
  - Hyperglycaemia [Unknown]
  - Product prescribing issue [Recovering/Resolving]
